FAERS Safety Report 14441524 (Version 1)
Quarter: 2018Q1

REPORT INFORMATION
  Report Type: Spontaneous
  Country: ZA (occurrence: ZA)
  Receive Date: 20180125
  Receipt Date: 20180125
  Transmission Date: 20180509
  Serious: Yes (Other)
  Sender: FDA-Public Use
  Company Number: ZA-SA-2018SA016645

PATIENT
  Sex: Female

DRUGS (7)
  1. SALAZOPYRIN [Suspect]
     Active Substance: SULFASALAZINE
     Route: 065
     Dates: start: 20111021
  2. ARAVA [Suspect]
     Active Substance: LEFLUNOMIDE
     Route: 048
     Dates: start: 20080301, end: 20150507
  3. METHOTREXATE. [Suspect]
     Active Substance: METHOTREXATE
     Route: 065
     Dates: start: 20100720, end: 20120529
  4. HUMIRA [Suspect]
     Active Substance: ADALIMUMAB
     Dosage: DOSE 40MG/2W
     Route: 065
     Dates: start: 20130206, end: 20130414
  5. CHLOROQUINE. [Suspect]
     Active Substance: CHLOROQUINE
     Route: 065
     Dates: start: 20051202, end: 20080301
  6. CORTICOSTEROID NOS [Suspect]
     Active Substance: CORTICOSTEROID NOS
     Route: 065
     Dates: start: 20051202
  7. ENBREL [Suspect]
     Active Substance: ETANERCEPT
     Dosage: DOSE 50MG/W
     Route: 065
     Dates: start: 20130414

REACTIONS (6)
  - Hepatic fibrosis [Unknown]
  - Ocular toxicity [Unknown]
  - Headache [Unknown]
  - Nausea [Unknown]
  - Rash [Unknown]
  - Mouth ulceration [Unknown]
